FAERS Safety Report 19178793 (Version 5)
Quarter: 2021Q2

REPORT INFORMATION
  Report Type: Report from Study
  Country: US (occurrence: US)
  Receive Date: 20210426
  Receipt Date: 20210601
  Transmission Date: 20210717
  Serious: Yes (Hospitalization)
  Sender: FDA-Public Use
  Company Number: NVSC2021US090825

PATIENT
  Age: 65 Year
  Sex: Male
  Weight: 58.3 kg

DRUGS (8)
  1. PDR001 [Suspect]
     Active Substance: SPARTALIZUMAB
     Indication: PANCREATIC CARCINOMA METASTATIC
     Dosage: 400 MG, Q4W
     Route: 065
     Dates: start: 20210323, end: 20210323
  2. OXYCODONE [Concomitant]
     Active Substance: OXYCODONE
     Indication: PAIN
     Dosage: 10 MG, Q4H
     Route: 048
     Dates: start: 20210408
  3. COMPARATOR GEMCITABINE [Suspect]
     Active Substance: GEMCITABINE HYDROCHLORIDE
     Indication: PANCREATIC CARCINOMA METASTATIC
     Dosage: 1000 MG/M2, QW
     Route: 042
     Dates: start: 20210323, end: 20210408
  4. LIPASE [Concomitant]
     Active Substance: LIPASE
     Indication: PANCREATIC CARCINOMA
     Dosage: UNK
     Route: 048
     Dates: start: 20210212
  5. ONDANSETRON [Concomitant]
     Active Substance: ONDANSETRON
     Indication: NAUSEA
     Dosage: 8 MG, Q8H
     Route: 048
     Dates: start: 20210324
  6. SENNA [Concomitant]
     Active Substance: SENNA LEAF\SENNOSIDES\SENNOSIDES A AND B
     Indication: CONSTIPATION
     Dosage: 1?2 TABLETS, Q12H
     Route: 048
     Dates: start: 20210323
  7. COMPARATOR NAB?PACLITAXEL [Suspect]
     Active Substance: PACLITAXEL
     Indication: PANCREATIC CARCINOMA METASTATIC
     Dosage: 125 MG/M2, QW
     Route: 042
     Dates: start: 20210323, end: 20210408
  8. ILARIS [Suspect]
     Active Substance: CANAKINUMAB
     Indication: PANCREATIC CARCINOMA METASTATIC
     Dosage: 250 MG, Q4W
     Route: 058
     Dates: start: 20210323, end: 20210323

REACTIONS (2)
  - Gastrointestinal haemorrhage [Not Recovered/Not Resolved]
  - Anaemia [Not Recovered/Not Resolved]

NARRATIVE: CASE EVENT DATE: 20210416
